FAERS Safety Report 11328176 (Version 1)
Quarter: 2015Q3

REPORT INFORMATION
  Report Type: Spontaneous
  Country: US (occurrence: US)
  Receive Date: 20150731
  Receipt Date: 20150731
  Transmission Date: 20151125
  Serious: No
  Sender: FDA-Public Use
  Company Number: US-B.I. PHARMACEUTICALS,INC./RIDGEFIELD-2015-BI-39313BP

PATIENT
  Age: 89 Year
  Sex: Male
  Weight: 30 kg

DRUGS (4)
  1. ADVAIR HFA [Concomitant]
     Active Substance: FLUTICASONE PROPIONATE\SALMETEROL XINAFOATE
     Indication: MESOTHELIOMA
     Route: 065
     Dates: start: 201504
  2. TAMSULOSIN [Concomitant]
     Active Substance: TAMSULOSIN
     Indication: BENIGN PROSTATIC HYPERPLASIA
     Route: 065
  3. SPIRIVA [Suspect]
     Active Substance: TIOTROPIUM BROMIDE MONOHYDRATE
     Indication: MESOTHELIOMA
     Dosage: 5 MCG
     Route: 055
     Dates: start: 201504
  4. PEMETREXED [Concomitant]
     Active Substance: PEMETREXED
     Indication: CHEMOTHERAPY
     Route: 065
     Dates: start: 201505

REACTIONS (4)
  - Off label use [Unknown]
  - Haemoglobin decreased [Unknown]
  - Weight decreased [Unknown]
  - Urinary retention [Unknown]

NARRATIVE: CASE EVENT DATE: 201504
